FAERS Safety Report 5163021-X (Version None)
Quarter: 2006Q4

REPORT INFORMATION
  Report Type: 
  Country: None (occurrence: None)
  Receive Date: 20061201
  Receipt Date: 20061120
  Transmission Date: 20070319
  Serious: Yes (Other)
  Sender: FDA-Public Use
  Company Number: US-AMGEN-US200871

PATIENT
  Sex: Male

DRUGS (2)
  1. ENBREL [Suspect]
     Indication: RHEUMATOID ARTHRITIS
     Route: 058
     Dates: start: 19990101
  2. METHOTREXATE [Concomitant]
     Route: 065
     Dates: start: 19990101

REACTIONS (4)
  - CAROTID ARTERY STENOSIS [None]
  - HEMIPARESIS [None]
  - HYPOAESTHESIA [None]
  - INJECTION SITE IRRITATION [None]
